FAERS Safety Report 16779236 (Version 6)
Quarter: 2021Q4

REPORT INFORMATION
  Report Type: Spontaneous
  Country: US (occurrence: US)
  Receive Date: 20190906
  Receipt Date: 20211027
  Transmission Date: 20220303
  Serious: No
  Sender: FDA-Public Use
  Company Number: US-PFIZER INC-2016568953

PATIENT
  Age: 52 Year
  Sex: Male
  Weight: 154 kg

DRUGS (18)
  1. LYRICA [Suspect]
     Active Substance: PREGABALIN
     Indication: Neuralgia
     Dosage: 100 MG, 3X/DAY (TID) (3 TIMES DAILY)
     Route: 048
     Dates: start: 20160609
  2. LYRICA [Suspect]
     Active Substance: PREGABALIN
     Indication: Intervertebral disc degeneration
  3. LYRICA [Suspect]
     Active Substance: PREGABALIN
     Indication: Pain
  4. LYRICA [Suspect]
     Active Substance: PREGABALIN
     Indication: Radiculopathy
  5. LYRICA [Suspect]
     Active Substance: PREGABALIN
     Indication: Pain in extremity
  6. LYRICA [Suspect]
     Active Substance: PREGABALIN
     Indication: Spondylitic myelopathy
  7. LYRICA [Suspect]
     Active Substance: PREGABALIN
     Indication: Spinal laminectomy
  8. LYRICA [Suspect]
     Active Substance: PREGABALIN
     Indication: Spinal osteoarthritis
  9. LYRICA [Suspect]
     Active Substance: PREGABALIN
     Indication: Intervertebral disc disorder
  10. LYRICA [Suspect]
     Active Substance: PREGABALIN
     Indication: Intervertebral disc displacement
  11. LYRICA [Suspect]
     Active Substance: PREGABALIN
     Indication: Neuropathy peripheral
  12. NORCO [Concomitant]
     Active Substance: ACETAMINOPHEN\HYDROCODONE BITARTRATE
     Indication: Pain
     Dosage: 1 DF, AS NEEDED (7.6-325 MG BID PRN)
     Route: 048
     Dates: start: 20161130
  13. NORCO [Concomitant]
     Active Substance: ACETAMINOPHEN\HYDROCODONE BITARTRATE
     Dosage: UNK
  14. LASIX [Concomitant]
     Active Substance: FUROSEMIDE
     Dosage: 20 MG, DAILY
     Route: 048
     Dates: start: 20130906
  15. VITAMIN D3 [Concomitant]
     Active Substance: CHOLECALCIFEROL
     Indication: Vitamin D deficiency
     Dosage: 4000 IU, 1X/DAY
     Route: 048
     Dates: start: 20160903
  16. VITAMIN D3 [Concomitant]
     Active Substance: CHOLECALCIFEROL
     Dosage: UNK
  17. FUROSEMIDE [Concomitant]
     Active Substance: FUROSEMIDE
     Dosage: UNK
  18. LORATADINE [Concomitant]
     Active Substance: LORATADINE
     Dosage: UNK

REACTIONS (3)
  - Therapeutic product effect incomplete [Not Recovered/Not Resolved]
  - Pain in extremity [Unknown]
  - Memory impairment [Unknown]
